FAERS Safety Report 5265028-0 (Version None)
Quarter: 2007Q1

REPORT INFORMATION
  Report Type: 
  Country: None (occurrence: None)
  Receive Date: 20070314
  Receipt Date: 20070306
  Transmission Date: 20070707
  Serious: Yes (Hospitalization)
  Sender: FDA-Public Use
  Company Number: HQWYE078108MAR07

PATIENT
  Sex: Male
  Weight: 73.7 kg

DRUGS (11)
  1. RAPAMUNE [Suspect]
     Indication: PROPHYLAXIS AGAINST TRANSPLANT REJECTION
     Route: 048
     Dates: start: 20060726, end: 20070201
  2. RAPAMUNE [Suspect]
     Route: 048
     Dates: start: 20070210
  3. CELLCEPT [Concomitant]
     Indication: IMMUNOSUPPRESSANT DRUG THERAPY
     Route: 048
     Dates: start: 20051128
  4. GLYBURIDE [Concomitant]
     Indication: DIABETES MELLITUS NON-INSULIN-DEPENDENT
     Route: 048
     Dates: start: 20050603
  5. HYDROCHLOROTHIAZIDE [Concomitant]
     Indication: OEDEMA
     Route: 048
     Dates: start: 20070125
  6. RESTORIL [Concomitant]
     Indication: SLEEP DISORDER
     Dosage: 15 MG EVERY 1 PRN
     Route: 048
     Dates: start: 20050901
  7. CIALIS [Concomitant]
     Indication: SEXUAL DYSFUNCTION
     Route: 048
     Dates: start: 20050816
  8. PROTONIX [Concomitant]
     Indication: GASTROOESOPHAGEAL REFLUX DISEASE
     Route: 048
     Dates: start: 20050407
  9. ZOCOR [Concomitant]
     Indication: LIPIDS
     Route: 048
     Dates: start: 20061130
  10. ASPIRIN [Concomitant]
     Indication: CARDIOVASCULAR EVENT PROPHYLAXIS
     Route: 048
     Dates: start: 20050706
  11. LEVOXYL [Concomitant]
     Indication: HYPOTHYROIDISM
     Route: 048
     Dates: start: 20050103

REACTIONS (1)
  - RENAL FAILURE ACUTE [None]
